FAERS Safety Report 13864447 (Version 1)
Quarter: 2017Q3

REPORT INFORMATION
  Report Type: Spontaneous
  Country: US (occurrence: US)
  Receive Date: 20170814
  Receipt Date: 20170814
  Transmission Date: 20171127
  Serious: Yes (Hospitalization)
  Sender: FDA-Public Use
  Company Number: US-PURDUE PHARMA-USA-2017-0140242

PATIENT
  Sex: Female
  Weight: 36.74 kg

DRUGS (2)
  1. THEOPHYLLINE ER TABLET (040086, 087571 RHODES) [Suspect]
     Active Substance: THEOPHYLLINE ANHYDROUS
     Dosage: 200 MG, UNK
     Route: 048
  2. THEOPHYLLINE ER TABLET (040086, 087571 RHODES) [Suspect]
     Active Substance: THEOPHYLLINE ANHYDROUS
     Indication: BRONCHIAL DISORDER
     Dosage: 400 MG, Q12H
     Route: 048

REACTIONS (3)
  - Cardiac disorder [Unknown]
  - Drug effect decreased [Unknown]
  - Heart rate increased [Unknown]
